FAERS Safety Report 9707922 (Version 1)
Quarter: 2013Q4

REPORT INFORMATION
  Report Type: Spontaneous
  Country: US (occurrence: None)
  Receive Date: 20131122
  Receipt Date: 20131122
  Transmission Date: 20140711
  Serious: Yes (Other)
  Sender: FDA-Public Use
  Company Number: None

PATIENT
  Age: 62 Year
  Sex: Male
  Weight: 110 kg

DRUGS (10)
  1. ZOMETA [Suspect]
     Indication: NON-SMALL CELL LUNG CANCER METASTATIC
     Dosage: 4 MG EVERY 21 DAYS INTRAVENOUS
     Route: 042
     Dates: start: 20121018, end: 20121227
  2. ZOMETA [Suspect]
     Indication: METASTASES TO BONE
     Dosage: 4 MG EVERY 21 DAYS INTRAVENOUS
     Route: 042
     Dates: start: 20121018, end: 20121227
  3. BEVACIZUMAB [Concomitant]
  4. PEMETREXED [Concomitant]
  5. CARBOPLATIN [Concomitant]
  6. DEXAMETHASONE [Concomitant]
  7. VITAMIN B12 [Concomitant]
  8. PROCHLORPERAZINE [Concomitant]
  9. FOLIC ACID [Concomitant]
  10. OMEPRAZOLE [Concomitant]

REACTIONS (1)
  - Exposed bone in jaw [None]
